FAERS Safety Report 9782304 (Version 1)
Quarter: 2013Q4

REPORT INFORMATION
  Report Type: Spontaneous
  Country: IT (occurrence: IT)
  Receive Date: 20131226
  Receipt Date: 20131226
  Transmission Date: 20140711
  Serious: Yes (Hospitalization)
  Sender: FDA-Public Use
  Company Number: PHHY2013IT149823

PATIENT
  Age: 60 Year
  Sex: Female

DRUGS (3)
  1. CICLOSPORIN [Suspect]
     Indication: IMMUNOSUPPRESSION
  2. AZATHIOPRINE [Suspect]
     Indication: IMMUNOSUPPRESSION
  3. MYCOPHENOLATE MOFETIL [Suspect]

REACTIONS (8)
  - Sialometaplasia [Recovered/Resolved]
  - Palatal disorder [Recovered/Resolved]
  - Breath odour [Recovered/Resolved]
  - Dysgeusia [Recovered/Resolved]
  - Pyrexia [Recovering/Resolving]
  - Necrotising ulcerative gingivostomatitis [Recovering/Resolving]
  - Inflammation [Recovering/Resolving]
  - Pseudoepitheliomatous hyperplasia [Recovering/Resolving]
